FAERS Safety Report 18033820 (Version 2)
Quarter: 2020Q3

REPORT INFORMATION
  Report Type: Spontaneous
  Country: BR (occurrence: BR)
  Receive Date: 20200716
  Receipt Date: 20200921
  Transmission Date: 20201103
  Serious: Yes (Other)
  Sender: FDA-Public Use
  Company Number: BR-GLAXOSMITHKLINE-BR2020AMR041673

PATIENT
  Sex: Female
  Weight: 58 kg

DRUGS (1)
  1. BENLYSTA [Suspect]
     Active Substance: BELIMUMAB
     Indication: SYSTEMIC LUPUS ERYTHEMATOSUS
     Dosage: UNK
     Dates: start: 20191028

REACTIONS (5)
  - Laboratory test abnormal [Unknown]
  - Incorrect product administration duration [Unknown]
  - Social problem [Unknown]
  - Systemic lupus erythematosus [Not Recovered/Not Resolved]
  - Therapy interrupted [Unknown]
